FAERS Safety Report 25164554 (Version 1)
Quarter: 2025Q2

REPORT INFORMATION
  Report Type: Spontaneous
  Country: US (occurrence: US)
  Receive Date: 20250406
  Receipt Date: 20250406
  Transmission Date: 20250716
  Serious: No
  Sender: JOHNSON AND JOHNSON
  Company Number: US-JNJFOC-20250316947

PATIENT
  Age: 82 Year
  Sex: Male

DRUGS (13)
  1. ERLEADA [Suspect]
     Active Substance: APALUTAMIDE
     Indication: Prostate cancer
  2. RELUGOLIX [Suspect]
     Active Substance: RELUGOLIX
     Indication: Prostate cancer
  3. ASPIRIN [Concomitant]
     Active Substance: ASPIRIN
  4. ATORVASTATIN [Concomitant]
     Active Substance: ATORVASTATIN
  5. CLOPIDOGREL [Concomitant]
     Active Substance: CLOPIDOGREL BISULFATE
  6. UBIDECARENONE [Concomitant]
     Active Substance: UBIDECARENONE
  7. DUTASTERIDE [Concomitant]
     Active Substance: DUTASTERIDE
  8. FUROSEMIDE [Concomitant]
     Active Substance: FUROSEMIDE
  9. ISOSORBIDE MONONITRATE [Concomitant]
     Active Substance: ISOSORBIDE MONONITRATE
  10. METOPROLOL SUCCINATE [Concomitant]
     Active Substance: METOPROLOL SUCCINATE
  11. ONDANSETRON [Concomitant]
     Active Substance: ONDANSETRON
  12. ERGOCALCIFEROL [Concomitant]
     Active Substance: ERGOCALCIFEROL
  13. ZOLPIDEM TARTRATE [Concomitant]
     Active Substance: ZOLPIDEM TARTRATE
     Route: 048

REACTIONS (4)
  - Blister [Unknown]
  - Skin exfoliation [Unknown]
  - Dry skin [Unknown]
  - Rash [Unknown]
